FAERS Safety Report 11357231 (Version 1)
Quarter: 2015Q3

REPORT INFORMATION
  Report Type: Spontaneous
  Country: US (occurrence: US)
  Receive Date: 20150803
  Receipt Date: 20150803
  Transmission Date: 20151125
  Serious: No
  Sender: FDA-Public Use
  Company Number: US-ELI_LILLY_AND_COMPANY-US201208003967

PATIENT
  Age: 53 Year
  Sex: Female

DRUGS (1)
  1. STRATTERA [Suspect]
     Active Substance: ATOMOXETINE HYDROCHLORIDE
     Dosage: 40 MG, UNKNOWN

REACTIONS (6)
  - Nausea [Unknown]
  - Dizziness [Unknown]
  - Muscular weakness [Unknown]
  - Insomnia [Unknown]
  - Feeling abnormal [Unknown]
  - Feeling hot [Unknown]
